FAERS Safety Report 7920396-3 (Version None)
Quarter: 2011Q4

REPORT INFORMATION
  Report Type: 
  Country: None (occurrence: None)
  Receive Date: 20111117
  Receipt Date: 20111110
  Transmission Date: 20120403
  Serious: Yes (Hospitalization)
  Sender: FDA-Public Use
  Company Number: US-ELI_LILLY_AND_COMPANY-US201111003982

PATIENT
  Sex: Female

DRUGS (5)
  1. TAXOTERE [Concomitant]
     Dosage: 150 MG, OTHER
     Dates: start: 20111109
  2. TAXOTERE [Concomitant]
     Indication: BREAST CANCER RECURRENT
     Dosage: 220 MG, OTHER
     Dates: start: 20111017
  3. PERCOCET [Concomitant]
     Indication: PAIN
     Dosage: 10 MG, PRN, Q6H
  4. GEMZAR [Suspect]
     Dosage: 1500 MG, OTHER
     Dates: start: 20111109
  5. GEMZAR [Suspect]
     Indication: BREAST CANCER RECURRENT
     Dosage: 2000 MG, OTHER
     Dates: start: 20111017

REACTIONS (5)
  - WEIGHT DECREASED [None]
  - WHITE BLOOD CELL COUNT DECREASED [None]
  - PYREXIA [None]
  - APHAGIA [None]
  - ORAL PAIN [None]
